FAERS Safety Report 20207217 (Version 1)
Quarter: 2021Q4

REPORT INFORMATION
  Report Type: Spontaneous
  Country: US (occurrence: None)
  Receive Date: 20211218
  Receipt Date: 20211218
  Transmission Date: 20220303
  Serious: Yes (Hospitalization)
  Sender: FDA-Public Use
  Company Number: None

PATIENT
  Age: 22 Year
  Sex: Female
  Weight: 56.7 kg

DRUGS (1)
  1. PARAGARD T 380A [Suspect]
     Active Substance: COPPER
     Indication: Product used for unknown indication

REACTIONS (11)
  - Dysmenorrhoea [None]
  - Alopecia [None]
  - Pelvic pain [None]
  - Pain [None]
  - Dizziness [None]
  - Dizziness [None]
  - Hyperhidrosis [None]
  - Proctalgia [None]
  - Uterine pain [None]
  - White blood cell count increased [None]
  - Infection [None]

NARRATIVE: CASE EVENT DATE: 20211217
